FAERS Safety Report 17773252 (Version 1)
Quarter: 2020Q2

REPORT INFORMATION
  Report Type: Report from Study
  Country: YE (occurrence: YE)
  Receive Date: 20200512
  Receipt Date: 20200512
  Transmission Date: 20200714
  Serious: Yes (Other)
  Sender: FDA-Public Use
  Company Number: YE-BRISTOL-MYERS SQUIBB COMPANY-BMS-2020-037739

PATIENT

DRUGS (1)
  1. HYDROXYUREA. [Suspect]
     Active Substance: HYDROXYUREA
     Indication: THALASSAEMIA
     Dosage: 15 MILLIGRAM/KILOGRAM, QD
     Route: 065

REACTIONS (2)
  - Respiratory tract infection [Unknown]
  - Intentional product use issue [Unknown]
